FAERS Safety Report 7287292-9 (Version None)
Quarter: 2011Q1

REPORT INFORMATION
  Report Type: 
  Country: None (occurrence: None)
  Receive Date: 20110211
  Receipt Date: 20110127
  Transmission Date: 20110831
  Serious: Yes (Death, Other)
  Sender: FDA-Public Use
  Company Number: JP-CELGENEUS-087-21880-11012813

PATIENT
  Sex: Female
  Weight: 34.8 kg

DRUGS (25)
  1. GLUCOSE [Concomitant]
     Route: 041
     Dates: start: 20100906, end: 20100921
  2. LASIX [Concomitant]
     Route: 041
     Dates: start: 20100919, end: 20100919
  3. VOLTAREN [Concomitant]
     Indication: MULTIPLE MYELOMA
     Route: 061
     Dates: start: 20100831, end: 20100901
  4. MYSLEE [Concomitant]
     Route: 048
     Dates: start: 20100828, end: 20100909
  5. NOVAMIN [Concomitant]
     Route: 048
     Dates: start: 20100828, end: 20100928
  6. KENALOG [Concomitant]
     Route: 061
     Dates: start: 20100901
  7. OXYCONTIN [Concomitant]
     Route: 065
     Dates: start: 20100831, end: 20100901
  8. POSTERISAN [Concomitant]
     Route: 061
     Dates: start: 20100828
  9. ANAFRANIL [Concomitant]
     Indication: MULTIPLE MYELOMA
     Route: 041
     Dates: start: 20100906, end: 20100921
  10. LACTEC [Concomitant]
     Route: 041
     Dates: start: 20100919, end: 20100920
  11. LACTEC [Concomitant]
     Route: 041
     Dates: start: 20100919, end: 20100920
  12. SOLU-CORTEF [Concomitant]
     Route: 065
     Dates: start: 20100919
  13. ASPIRIN [Concomitant]
     Indication: PROPHYLAXIS
     Route: 048
     Dates: start: 20100828, end: 20100908
  14. PANTOSIN [Concomitant]
     Route: 048
     Dates: start: 20100828, end: 20100909
  15. MAGLAX [Concomitant]
     Route: 048
     Dates: start: 20100828, end: 20100909
  16. SOLITA-T NO.3 [Concomitant]
     Route: 041
     Dates: start: 20100901, end: 20100913
  17. VOLTAREN [Concomitant]
     Route: 061
     Dates: start: 20100919, end: 20100921
  18. LENADEX [Suspect]
     Indication: MULTIPLE MYELOMA
     Route: 048
     Dates: start: 20100828, end: 20100916
  19. PREPENON [Concomitant]
     Indication: MULTIPLE MYELOMA
     Route: 041
     Dates: start: 20100901, end: 20100928
  20. ISOTONIC SODIUM CHLORIDE SOLUTION [Concomitant]
     Route: 041
     Dates: start: 20100917, end: 20100928
  21. REVLIMID [Suspect]
     Indication: MULTIPLE MYELOMA
     Route: 048
     Dates: start: 20100828, end: 20100917
  22. OXYCONTIN [Concomitant]
     Indication: MULTIPLE MYELOMA
     Route: 065
     Dates: start: 20100828, end: 20100830
  23. MOBIC [Concomitant]
     Indication: MULTIPLE MYELOMA
     Route: 048
     Dates: start: 20100902, end: 20100928
  24. ISOTONIC SODIUM CHLORIDE SOLUTION [Concomitant]
     Route: 041
     Dates: start: 20100913, end: 20100921
  25. FUKUKORIN [Concomitant]
     Route: 041
     Dates: start: 20100917, end: 20100921

REACTIONS (8)
  - ALANINE AMINOTRANSFERASE INCREASED [None]
  - SEPTIC SHOCK [None]
  - SEPSIS [None]
  - PLATELET COUNT DECREASED [None]
  - HAEMORRHAGIC DIATHESIS [None]
  - WHITE BLOOD CELL COUNT DECREASED [None]
  - RENAL FAILURE [None]
  - ANAEMIA [None]
